FAERS Safety Report 23170773 (Version 1)
Quarter: 2023Q4

REPORT INFORMATION
  Report Type: Spontaneous
  Country: US (occurrence: None)
  Receive Date: 20231109
  Receipt Date: 20231109
  Transmission Date: 20240110
  Serious: Yes (Other)
  Sender: FDA-Public Use
  Company Number: None

PATIENT
  Sex: Female
  Weight: 58.5 kg

DRUGS (1)
  1. CYCLOSPORINE [Suspect]
     Active Substance: CYCLOSPORINE
     Indication: Dry eye
     Dosage: 1 GTT DROP TWICE A DAY OPHTHALMIC?
     Route: 047
     Dates: start: 20230814, end: 20231005

REACTIONS (2)
  - Instillation site irritation [None]
  - Instillation site discomfort [None]
